FAERS Safety Report 19167980 (Version 1)
Quarter: 2021Q2

REPORT INFORMATION
  Report Type: Spontaneous
  Country: US (occurrence: US)
  Receive Date: 20210421
  Receipt Date: 20210421
  Transmission Date: 20210717
  Serious: No
  Sender: FDA-Public Use
  Company Number: None

PATIENT
  Age: 44 Year
  Sex: Female

DRUGS (1)
  1. OTEZLA [Suspect]
     Active Substance: APREMILAST
     Indication: PSORIASIS
     Route: 048
     Dates: start: 202102

REACTIONS (7)
  - Nausea [None]
  - Headache [None]
  - Diarrhoea [None]
  - Therapeutic product effect incomplete [None]
  - Anger [None]
  - Abdominal pain upper [None]
  - Depressed mood [None]

NARRATIVE: CASE EVENT DATE: 202102
